FAERS Safety Report 4989261-8 (Version None)
Quarter: 2006Q2

REPORT INFORMATION
  Report Type: 
  Country: None (occurrence: None)
  Receive Date: 20060425
  Receipt Date: 20060418
  Transmission Date: 20061013
  Serious: Yes (Disabling, Other)
  Sender: FDA-Public Use
  Company Number: USA-2004-0015722

PATIENT
  Age: 44 Year
  Sex: Female

DRUGS (9)
  1. OXYCONTIN [Suspect]
     Indication: PAIN
     Dosage: 20 MG BID ORAL
     Route: 048
  2. LAMOTRIGINE [Concomitant]
  3. FOSAMAX [Concomitant]
  4. PAXIL [Concomitant]
  5. PREMARIN [Concomitant]
  6. NORTRIPTYLINE HCL [Concomitant]
  7. TRAZODONE HCL [Concomitant]
  8. LAMICTAL [Concomitant]
  9. VICODIN [Concomitant]

REACTIONS (28)
  - ANXIETY [None]
  - ASTHENIA [None]
  - BURNING SENSATION [None]
  - DEPRESSION [None]
  - DIZZINESS [None]
  - DRUG DEPENDENCE [None]
  - DRUG INEFFECTIVE [None]
  - DRUG WITHDRAWAL SYNDROME [None]
  - EMOTIONAL DISTRESS [None]
  - HEADACHE [None]
  - HEMIPARESIS [None]
  - HYPERAESTHESIA [None]
  - HYPOAESTHESIA [None]
  - IMPAIRED WORK ABILITY [None]
  - INITIAL INSOMNIA [None]
  - MUSCULOSKELETAL DISCOMFORT [None]
  - NEURALGIA [None]
  - NODULE ON EXTREMITY [None]
  - OBSESSIVE-COMPULSIVE DISORDER [None]
  - OEDEMA PERIPHERAL [None]
  - PAIN [None]
  - PAIN IN EXTREMITY [None]
  - PARAESTHESIA [None]
  - PARANOIA [None]
  - SENSORY LOSS [None]
  - SOMNOLENCE [None]
  - SYNCOPE [None]
  - TENDERNESS [None]
